FAERS Safety Report 9271697 (Version 1)
Quarter: 2013Q2

REPORT INFORMATION
  Report Type: Spontaneous
  Country: US (occurrence: US)
  Receive Date: 20130506
  Receipt Date: 20130506
  Transmission Date: 20140414
  Serious: No
  Sender: FDA-Public Use
  Company Number: US-COVIDIEN/TYCO HEALTHCARE/MALLINCKRODT-T201204357

PATIENT
  Age: 77 Year
  Sex: Female

DRUGS (1)
  1. HYDROCODONE/ACETAMINOPHEN [Suspect]
     Indication: PAIN
     Dosage: 5/500 MG, ONE TABLET QID, PRN
     Dates: start: 2012

REACTIONS (2)
  - Drug screen negative [Not Recovered/Not Resolved]
  - Drug ineffective [Not Recovered/Not Resolved]
